FAERS Safety Report 22023379 (Version 1)
Quarter: 2023Q1

REPORT INFORMATION
  Report Type: Spontaneous
  Country: FR (occurrence: FR)
  Receive Date: 20230223
  Receipt Date: 20230223
  Transmission Date: 20230417
  Serious: Yes (Life-Threatening, Hospitalization, Other)
  Sender: FDA-Public Use
  Company Number: None

PATIENT
  Age: 32 Year
  Sex: Female

DRUGS (4)
  1. FLUMAZENIL [Suspect]
     Active Substance: FLUMAZENIL
     Dosage: 0.5 MG
     Dates: start: 20230130
  2. CLONAZEPAM [Suspect]
     Active Substance: CLONAZEPAM
     Dosage: 0.5MG X2
     Route: 042
     Dates: start: 20230130
  3. PAROXETINE [Suspect]
     Active Substance: PAROXETINE
     Dosage: 5 X 10 MG
     Dates: start: 20230129
  4. VALIUM [Suspect]
     Active Substance: DIAZEPAM
     Dosage: 5 MG
     Dates: start: 20230129

REACTIONS (4)
  - Seizure [Recovered/Resolved]
  - Bradycardia [Recovered/Resolved]
  - Cardio-respiratory arrest [Recovered/Resolved]
  - Electrocardiogram QT prolonged [Unknown]

NARRATIVE: CASE EVENT DATE: 20230130
